FAERS Safety Report 5587501-8 (Version None)
Quarter: 2007Q4

REPORT INFORMATION
  Report Type: 
  Country: None (occurrence: None)
  Receive Date: 20071207
  Receipt Date: 20070227
  Transmission Date: 20080405
  Serious: Yes (Other)
  Sender: FDA-Public Use
  Company Number: 2007016132

PATIENT

DRUGS (2)
  1. VIAGRA [Suspect]
     Dosage: (50 MG)
     Dates: start: 20070112
  2. LISINOPRIL [Concomitant]

REACTIONS (2)
  - RECTAL HAEMORRHAGE [None]
  - THROAT TIGHTNESS [None]
